FAERS Safety Report 8604484 (Version 3)
Quarter: 2012Q4

REPORT INFORMATION
  Report Type: 
  Country: GB (occurrence: GB)
  Receive Date: 20120608
  Receipt Date: 20120905
  Transmission Date: 20130627
  Serious: Yes (Hospitalization)
  Sender: FDA-Public Use
  Company Number: PHHY2012GB047362

PATIENT
  Age: 36 Year
  Sex: Female

DRUGS (2)
  1. CARBAMAZEPINE [Suspect]
     Indication: EPILEPSY
  2. IMPLANON [Interacting]
     Indication: CONTRACEPTION

REACTIONS (8)
  - Ruptured ectopic pregnancy [Recovered/Resolved]
  - Abdominal pain lower [Recovering/Resolving]
  - Thrombosis [Recovering/Resolving]
  - Vaginal haemorrhage [Recovering/Resolving]
  - Abortion [Recovered/Resolved]
  - Exposure during pregnancy [Unknown]
  - Drug interaction [Recovered/Resolved]
  - Drug ineffective [Recovered/Resolved]
